FAERS Safety Report 19936205 (Version 3)
Quarter: 2022Q1

REPORT INFORMATION
  Report Type: Spontaneous
  Country: JP (occurrence: JP)
  Receive Date: 20211008
  Receipt Date: 20220105
  Transmission Date: 20220423
  Serious: Yes (Death)
  Sender: FDA-Public Use
  Company Number: JP-JNJFOC-A-CH2014-100986

PATIENT
  Age: 17 Year
  Sex: Female

DRUGS (6)
  1. MIGLUSTAT [Suspect]
     Active Substance: MIGLUSTAT
     Indication: Niemann-Pick disease
     Dosage: 100 MG, TID
     Route: 048
     Dates: start: 20140611, end: 20140618
  2. MIGLUSTAT [Suspect]
     Active Substance: MIGLUSTAT
     Dosage: 100 MG, OD
     Route: 048
     Dates: start: 20140609, end: 20140610
  3. MIGLUSTAT [Suspect]
     Active Substance: MIGLUSTAT
     Dosage: 200 MG, TID
     Route: 048
     Dates: start: 20140619
  4. LORATADINE [Concomitant]
     Active Substance: LORATADINE
  5. CLARITIN [Concomitant]
     Active Substance: LORATADINE
     Indication: Rhinitis allergic
     Dates: start: 20140623, end: 20191024
  6. DIETARY SUPPLEMENT\PROBIOTICS [Concomitant]
     Active Substance: DIETARY SUPPLEMENT\PROBIOTICS
     Indication: Diarrhoea
     Dates: start: 20140611, end: 20191024

REACTIONS (4)
  - Niemann-Pick disease [Fatal]
  - Sleep disorder [Recovering/Resolving]
  - Tremor [Recovering/Resolving]
  - Diarrhoea [Recovering/Resolving]

NARRATIVE: CASE EVENT DATE: 20140610
